FAERS Safety Report 16441858 (Version 1)
Quarter: 2019Q2

REPORT INFORMATION
  Report Type: Report from Study
  Country: None (occurrence: US)
  Receive Date: 20190617
  Receipt Date: 20190617
  Transmission Date: 20190711
  Serious: No
  Sender: FDA-Public Use
  Company Number: US-US WORLDMEDS, LLC-USW201808-001251

PATIENT
  Age: 81 Year
  Sex: Male
  Weight: 81.6 kg

DRUGS (6)
  1. TRAMADOL. [Concomitant]
     Active Substance: TRAMADOL
  2. SINEMET [Concomitant]
     Active Substance: CARBIDOPA\LEVODOPA
  3. FLOMAX [Concomitant]
     Active Substance: TAMSULOSIN HYDROCHLORIDE
  4. XARELTO [Concomitant]
     Active Substance: RIVAROXABAN
  5. METOPROLOL. [Concomitant]
     Active Substance: METOPROLOL
  6. APOKYN [Suspect]
     Active Substance: APOMORPHINE HYDROCHLORIDE
     Indication: PARKINSON^S DISEASE
     Route: 058
     Dates: start: 20180514

REACTIONS (2)
  - Hallucination [Recovered/Resolved]
  - Fall [Recovered/Resolved]

NARRATIVE: CASE EVENT DATE: 20180813
